FAERS Safety Report 14046511 (Version 3)
Quarter: 2017Q4

REPORT INFORMATION
  Report Type: Spontaneous
  Country: US (occurrence: US)
  Receive Date: 20171005
  Receipt Date: 20171016
  Transmission Date: 20180321
  Serious: Yes (Hospitalization, Other)
  Sender: FDA-Public Use
  Company Number: US-JNJFOC-20171000096

PATIENT
  Age: 67 Year
  Sex: Female
  Weight: 58 kg

DRUGS (4)
  1. REMICADE [Suspect]
     Active Substance: INFLIXIMAB
     Indication: CROHN^S DISEASE
     Route: 042
     Dates: start: 2014, end: 201705
  2. STELARA [Suspect]
     Active Substance: USTEKINUMAB
     Indication: CROHN^S DISEASE
     Route: 042
     Dates: start: 201705
  3. VITAMIN B12 [Concomitant]
     Active Substance: CYANOCOBALAMIN
     Route: 065
  4. IRON [Concomitant]
     Active Substance: IRON
     Route: 048

REACTIONS (5)
  - Fistula [Not Recovered/Not Resolved]
  - Acute leukaemia [Unknown]
  - Intestinal stenosis [Not Recovered/Not Resolved]
  - Drug ineffective [Unknown]
  - Syncope [Unknown]

NARRATIVE: CASE EVENT DATE: 201705
